FAERS Safety Report 23386172 (Version 1)
Quarter: 2024Q1

REPORT INFORMATION
  Report Type: Spontaneous
  Country: FR (occurrence: FR)
  Receive Date: 20240110
  Receipt Date: 20240110
  Transmission Date: 20240410
  Serious: Yes (Other)
  Sender: FDA-Public Use
  Company Number: FR-TEVA-VS-3141456

PATIENT

DRUGS (2)
  1. CELECOXIB [Suspect]
     Active Substance: CELECOXIB
     Indication: Product used for unknown indication
     Dosage: ONE CAPSULE TO TAKE IN THE MORNING AND IN THE EVENING.
     Route: 065
  2. ACETAMINOPHEN\TRAMADOL [Concomitant]
     Active Substance: ACETAMINOPHEN\TRAMADOL

REACTIONS (4)
  - Asthmatic crisis [Unknown]
  - Pruritus [Unknown]
  - Contraindicated product prescribed [Unknown]
  - Feeling hot [Unknown]
